FAERS Safety Report 4618111-4 (Version None)
Quarter: 2005Q1

REPORT INFORMATION
  Report Type: 
  Country: None (occurrence: None)
  Receive Date: 20050324
  Receipt Date: 20050314
  Transmission Date: 20050727
  Serious: Yes (Life-Threatening, Other)
  Sender: FDA-Public Use
  Company Number: FR-NOVOPROD-242933

PATIENT
  Age: 52 Year
  Sex: Male

DRUGS (3)
  1. NOVOSEVEN [Suspect]
     Indication: FACTOR IX DEFICIENCY
     Dosage: 120 UG/KG,EVERY 2ND H FOR 2 DAYS
  2. NOVOSEVEN [Suspect]
     Dosage: 120 UG/KG,EVERY 4TH H FOR 2 DAYS
  3. NOVOSEVEN [Suspect]
     Dosage: 120 UG/KG,EVERY 6TH H FOR 4 DAYS

REACTIONS (2)
  - ANAEMIA [None]
  - HYPOVOLAEMIC SHOCK [None]
